FAERS Safety Report 7046977-X (Version None)
Quarter: 2010Q4

REPORT INFORMATION
  Report Type: 
  Country: None (occurrence: None)
  Receive Date: 20101015
  Receipt Date: 20101004
  Transmission Date: 20110411
  Serious: Yes (Other)
  Sender: FDA-Public Use
  Company Number: IT-RANBAXY-2010RR-38732

PATIENT
  Sex: Male

DRUGS (1)
  1. PARACETAMOL [Suspect]

REACTIONS (1)
  - FACE OEDEMA [None]
